FAERS Safety Report 6524041-3 (Version None)
Quarter: 2009Q4

REPORT INFORMATION
  Report Type: 
  Country: None (occurrence: None)
  Receive Date: 20091231
  Receipt Date: 20091230
  Transmission Date: 20100525
  Serious: Yes (Death, Other)
  Sender: FDA-Public Use
  Company Number: PHEH2009US18263

PATIENT
  Sex: Female

DRUGS (4)
  1. FEMARA [Suspect]
     Indication: BREAST CANCER
     Dosage: 2.5 MG, QD
     Route: 048
     Dates: start: 20081007, end: 20091128
  2. DIGOXIN [Concomitant]
     Dosage: 0.25 MG, QD
     Route: 048
  3. ATENOLOL [Concomitant]
     Dosage: 50 MG, QD
     Route: 048
  4. COUMADIN [Concomitant]
     Dosage: 2 MG 4 DAYS, 3 MG 3 DAYS
     Dates: start: 19980101

REACTIONS (3)
  - DEATH [None]
  - ENTEROCOLITIS INFECTIOUS [None]
  - GASTROINTESTINAL INFECTION [None]
